FAERS Safety Report 18188225 (Version 6)
Quarter: 2021Q1

REPORT INFORMATION
  Report Type: Spontaneous
  Country: JP (occurrence: JP)
  Receive Date: 20200824
  Receipt Date: 20210212
  Transmission Date: 20210419
  Serious: Yes (Death, Other)
  Sender: FDA-Public Use
  Company Number: JP-BRISTOL-MYERS SQUIBB COMPANY-BMS-2020-067843

PATIENT
  Age: 55 Year
  Sex: Male

DRUGS (9)
  1. AMBROXOL HYDROCHLORIDE [Concomitant]
     Active Substance: AMBROXOL HYDROCHLORIDE
     Indication: PROPHYLAXIS
     Dosage: 45 MILLIGRAM, QD
     Route: 048
     Dates: start: 20180213
  2. OPDIVO [Suspect]
     Active Substance: NIVOLUMAB
     Indication: NON-SMALL CELL LUNG CANCER RECURRENT
     Dosage: UNK
     Route: 041
     Dates: start: 201807, end: 20191108
  3. ADONA [CARBAZOCHROME SODIUM SULFONATE] [Concomitant]
     Active Substance: CARBAZOCHROME SODIUM SULFONATE
     Indication: PRODUCT USED FOR UNKNOWN INDICATION
     Dosage: 30 MILLIGRAM, Q8H
     Route: 048
  4. NAIXAN [NAPROXEN SODIUM] [Concomitant]
     Indication: PRODUCT USED FOR UNKNOWN INDICATION
     Dosage: 100 MILLIGRAM, Q8H
     Route: 048
     Dates: start: 20180111
  5. RISEDRONATE SODIUM. [Concomitant]
     Active Substance: RISEDRONATE SODIUM
     Indication: PROPHYLAXIS
     Dosage: 1 DOSAGE FORM, QWK
     Route: 048
     Dates: start: 20180713
  6. CARBOCISTEINE [Concomitant]
     Active Substance: CARBOCYSTEINE
     Indication: PRODUCT USED FOR UNKNOWN INDICATION
     Dosage: 500 MILLIGRAM, Q8H
     Route: 048
  7. MEDICON [DEXTROMETHORPHAN HYDROBROMIDE] [Concomitant]
     Active Substance: DEXTROMETHORPHAN HYDROBROMIDE
     Indication: PRODUCT USED FOR UNKNOWN INDICATION
     Dosage: 15 MILLIGRAM, Q8H
     Route: 048
  8. TAKECAB [Concomitant]
     Active Substance: VONOPRAZAN FUMARATE
     Indication: PROPHYLAXIS
     Dosage: 10 MILLIGRAM, QD
     Route: 048
     Dates: start: 20171226
  9. DAIPHEN [Concomitant]
     Active Substance: SULFAMETHOXAZOLE\TRIMETHOPRIM
     Indication: PROPHYLAXIS
     Dosage: 1 DOSAGE FORM, Q56H
     Route: 048
     Dates: start: 20180713

REACTIONS (3)
  - Peripheral T-cell lymphoma unspecified [Fatal]
  - Colitis [Not Recovered/Not Resolved]
  - Malignant neoplasm progression [Unknown]

NARRATIVE: CASE EVENT DATE: 201807
